FAERS Safety Report 12705612 (Version 1)
Quarter: 2016Q3

REPORT INFORMATION
  Report Type: Spontaneous
  Country: US (occurrence: None)
  Receive Date: 20160831
  Receipt Date: 20160831
  Transmission Date: 20161109
  Serious: No
  Sender: FDA-Public Use
  Company Number: None

PATIENT
  Age: 22 Year
  Sex: Male
  Weight: 75.75 kg

DRUGS (10)
  1. LEVOTHYROXINE. [Concomitant]
     Active Substance: LEVOTHYROXINE
  2. TRIAMCINOLONE CREAM [Concomitant]
     Active Substance: TRIAMCINOLONE
  3. NASALCORT [Concomitant]
  4. BIOTIN [Concomitant]
     Active Substance: BIOTIN
  5. MYRBETRIQ [Concomitant]
     Active Substance: MIRABEGRON
  6. DDAVP [Suspect]
     Active Substance: DESMOPRESSIN ACETATE
     Indication: DIABETES INSIPIDUS
     Dosage: 7 SPRAYS PER NIGHT IN NOSTRILS
     Route: 045
     Dates: start: 200001
  7. PSEUDOEPHEDRINE [Concomitant]
     Active Substance: PSEUDOEPHEDRINE
  8. METFORMIN [Concomitant]
     Active Substance: METFORMIN HYDROCHLORIDE
  9. FLOVENT [Concomitant]
     Active Substance: FLUTICASONE PROPIONATE
  10. VITAMIN D [Concomitant]
     Active Substance: CHOLECALCIFEROL

REACTIONS (2)
  - Incorrect dose administered by device [None]
  - Device issue [None]

NARRATIVE: CASE EVENT DATE: 20160820
